FAERS Safety Report 13249353 (Version 1)
Quarter: 2017Q1

REPORT INFORMATION
  Report Type: Spontaneous
  Country: US (occurrence: US)
  Receive Date: 20170218
  Receipt Date: 20170218
  Transmission Date: 20170428
  Serious: No
  Sender: FDA-Public Use
  Company Number: US-ALLERGAN-1677800US

PATIENT
  Sex: Female

DRUGS (1)
  1. RESTASIS [Suspect]
     Active Substance: CYCLOSPORINE
     Indication: EYE DISORDER
     Dosage: 2 GTT, BID
     Route: 047

REACTIONS (2)
  - Off label use [Unknown]
  - Joint injury [Recovered/Resolved]
